FAERS Safety Report 7757318-4 (Version None)
Quarter: 2011Q3

REPORT INFORMATION
  Report Type: 
  Country: None (occurrence: None)
  Receive Date: 20110916
  Receipt Date: 20110906
  Transmission Date: 20111222
  Serious: Yes (Other)
  Sender: FDA-Public Use
  Company Number: CA-JNJFOC-20110902947

PATIENT
  Sex: Female
  Weight: 73 kg

DRUGS (11)
  1. REMICADE [Suspect]
     Indication: CROHN'S DISEASE
     Route: 042
     Dates: start: 20110906
  2. SYNTHROID [Concomitant]
     Route: 065
  3. MULTIVITAMINES [Concomitant]
     Dosage: %
     Route: 065
  4. NORVASC [Concomitant]
     Route: 065
  5. BARLEY GREEN [Concomitant]
     Dosage: ONE TABLE SPOON.
     Route: 065
  6. SALAGEN [Concomitant]
     Route: 065
  7. REMICADE [Suspect]
     Dosage: 100MG
     Route: 042
     Dates: start: 20070501
  8. VITAMIN B-12 [Concomitant]
     Dosage: B12 STRESS TAB
     Route: 065
  9. CALCIUM CARBONATE [Concomitant]
     Route: 065
  10. FOLIC ACID [Concomitant]
     Dosage: TB%
     Route: 065
  11. ASPIRIN [Concomitant]
     Route: 065

REACTIONS (1)
  - LUNG NEOPLASM [None]
